FAERS Safety Report 5411936-7 (Version None)
Quarter: 2007Q3

REPORT INFORMATION
  Report Type: 
  Country: None (occurrence: None)
  Receive Date: 20070809
  Receipt Date: 20070809
  Transmission Date: 20080115
  Serious: Yes (Other)
  Sender: FDA-Public Use
  Company Number: None

PATIENT
  Age: 20 Year
  Sex: Female
  Weight: 73.9363 kg

DRUGS (1)
  1. EPIPEN [Suspect]
     Indication: ALLERGY TO ARTHROPOD STING

REACTIONS (2)
  - NAIL BED INJURY [None]
  - VASCULAR INJURY [None]
